FAERS Safety Report 21498539 (Version 1)
Quarter: 2022Q4

REPORT INFORMATION
  Report Type: Spontaneous
  Country: TN (occurrence: TN)
  Receive Date: 20221024
  Receipt Date: 20221024
  Transmission Date: 20230113
  Serious: Yes (Other)
  Sender: FDA-Public Use
  Company Number: TN-PFIZER INC-2018452207

PATIENT
  Age: 60 Year
  Sex: Female

DRUGS (11)
  1. ATORVASTATIN [Suspect]
     Active Substance: ATORVASTATIN
     Indication: Dyslipidaemia
     Dosage: 10 MILLIGRAM, QD (DAILY)
     Route: 065
     Dates: start: 201910
  2. ATORVASTATIN [Suspect]
     Active Substance: ATORVASTATIN
     Indication: Cerebrovascular accident
  3. ATORVASTATIN [Suspect]
     Active Substance: ATORVASTATIN
     Indication: Hypercholesterolaemia
  4. ROSUVASTATIN [Suspect]
     Active Substance: ROSUVASTATIN
     Indication: Hypercholesterolaemia
     Dosage: 5 MILLIGRAM, QD
     Route: 065
     Dates: start: 202005
  5. FAMOTIDINE [Concomitant]
     Active Substance: FAMOTIDINE
     Indication: Dyslipidaemia
     Dosage: 40 MILLIGRAM
     Route: 065
     Dates: start: 201910
  6. FAMOTIDINE [Concomitant]
     Active Substance: FAMOTIDINE
     Indication: Cerebrovascular accident
  7. FAMOTIDINE [Concomitant]
     Active Substance: FAMOTIDINE
     Indication: Hypercholesterolaemia
  8. ASPIRIN [Concomitant]
     Active Substance: ASPIRIN
     Indication: Cerebrovascular accident
     Dosage: 160 MILLIGRAM
     Route: 065
     Dates: start: 201910
  9. ASPIRIN [Concomitant]
     Active Substance: ASPIRIN
     Indication: Dyslipidaemia
  10. ASPIRIN [Concomitant]
     Active Substance: ASPIRIN
     Indication: Hypercholesterolaemia
  11. LYSINE ACETYLSALICYLATE [Concomitant]
     Active Substance: ASPIRIN DL-LYSINE
     Dosage: UNK
     Route: 065

REACTIONS (4)
  - Dysphagia [Unknown]
  - Speech disorder [Unknown]
  - Dyspnoea [Unknown]
  - Angioedema [Recovered/Resolved]

NARRATIVE: CASE EVENT DATE: 20191001
